FAERS Safety Report 7328271-2 (Version None)
Quarter: 2011Q1

REPORT INFORMATION
  Report Type: 
  Country: None (occurrence: None)
  Receive Date: 20110303
  Receipt Date: 20110224
  Transmission Date: 20110831
  Serious: No
  Sender: FDA-Public Use
  Company Number: US-PFIZER INC-2011040738

PATIENT
  Sex: Female
  Weight: 72 kg

DRUGS (2)
  1. PLAN B [Suspect]
     Indication: CONTRACEPTION
     Dosage: 1.5 MG, 1X/DAY
     Route: 048
     Dates: start: 20110130, end: 20110130
  2. DEPO-PROVERA [Suspect]
     Indication: CONTRACEPTION
     Dosage: UNK
     Dates: start: 20101218

REACTIONS (4)
  - PAROSMIA [None]
  - DIZZINESS [None]
  - VAGINAL HAEMORRHAGE [None]
  - NAUSEA [None]
